FAERS Safety Report 14512957 (Version 1)
Quarter: 2018Q1

REPORT INFORMATION
  Report Type: Spontaneous
  Country: US (occurrence: US)
  Receive Date: 20180209
  Receipt Date: 20180209
  Transmission Date: 20180509
  Serious: No
  Sender: FDA-Public Use
  Company Number: US-ALLERGAN-1731454US

PATIENT
  Sex: Female

DRUGS (4)
  1. RESTASIS [Suspect]
     Active Substance: CYCLOSPORINE
     Dosage: UNK, QD
     Route: 047
  2. RESTASIS [Suspect]
     Active Substance: CYCLOSPORINE
     Indication: DRY EYE
     Dosage: UNK, QD
     Route: 047
  3. RESTASIS [Suspect]
     Active Substance: CYCLOSPORINE
     Dosage: UNK, QD
     Route: 047
  4. RESTASIS [Suspect]
     Active Substance: CYCLOSPORINE
     Dosage: UNK, QD
     Route: 047

REACTIONS (5)
  - Inappropriate schedule of drug administration [Unknown]
  - Medication error [Unknown]
  - Dry eye [Not Recovered/Not Resolved]
  - Product packaging issue [Unknown]
  - Ocular hyperaemia [Not Recovered/Not Resolved]
